FAERS Safety Report 6583973-0 (Version None)
Quarter: 2010Q1

REPORT INFORMATION
  Report Type: 
  Country: None (occurrence: None)
  Receive Date: 20100213
  Receipt Date: 20100213
  Transmission Date: 20100710
  Serious: Yes (Other)
  Sender: FDA-Public Use
  Company Number: None

PATIENT
  Age: 63 Year
  Sex: Female
  Weight: 87.0906 kg

DRUGS (2)
  1. POLYETHYLENE GLYCOL 3350 [Suspect]
     Indication: CONSTIPATION
     Dosage: 17 GRAMS MIXED WITH WATER EVERYDAY PO
     Route: 048
     Dates: start: 20091026, end: 20100119
  2. POLYETHLENE GLYCOL [Concomitant]

REACTIONS (1)
  - CHOKING [None]
